FAERS Safety Report 25280290 (Version 1)
Quarter: 2025Q2

REPORT INFORMATION
  Report Type: Spontaneous
  Country: CN (occurrence: CN)
  Receive Date: 20250507
  Receipt Date: 20250507
  Transmission Date: 20250717
  Serious: Yes (Other)
  Sender: BEIGENE
  Company Number: CN-BEIGENE-BGN-2025-006961

PATIENT
  Age: 44 Year
  Weight: 51 kg

DRUGS (7)
  1. TISLELIZUMAB [Suspect]
     Active Substance: TISLELIZUMAB
     Indication: Clear cell renal cell carcinoma
     Dosage: 200 MILLIGRAM, Q3WK
  2. TISLELIZUMAB [Suspect]
     Active Substance: TISLELIZUMAB
     Indication: Metastases to bone
     Dosage: 200 MILLIGRAM, Q3WK
     Route: 041
  3. TISLELIZUMAB [Suspect]
     Active Substance: TISLELIZUMAB
     Indication: Metastases to lung
     Dosage: 200 MILLIGRAM, Q3WK
     Route: 041
  4. TISLELIZUMAB [Suspect]
     Active Substance: TISLELIZUMAB
     Dosage: 200 MILLIGRAM, Q3WK
  5. AXITINIB [Suspect]
     Active Substance: AXITINIB
     Indication: Clear cell renal cell carcinoma
     Dosage: 5 MILLIGRAM, BID
  6. AXITINIB [Suspect]
     Active Substance: AXITINIB
     Indication: Metastases to bone
     Dosage: 5 MILLIGRAM, QD
  7. AXITINIB [Suspect]
     Active Substance: AXITINIB
     Indication: Metastases to lung

REACTIONS (4)
  - Hypothyroidism [Unknown]
  - Liver injury [Unknown]
  - Hypertension [Unknown]
  - Dyslipidaemia [Unknown]
